FAERS Safety Report 9403231 (Version 1)
Quarter: 2013Q3

REPORT INFORMATION
  Report Type: Spontaneous
  Country: US (occurrence: None)
  Receive Date: 20130715
  Receipt Date: 20130715
  Transmission Date: 20140515
  Serious: Yes (Hospitalization)
  Sender: FDA-Public Use
  Company Number: None

PATIENT
  Age: 63 Year
  Sex: Male
  Weight: 99 kg

DRUGS (1)
  1. PERMETHRIN [Suspect]
     Indication: ACARODERMATITIS
     Route: 061
     Dates: start: 20130408, end: 20130508

REACTIONS (4)
  - Dermatitis [None]
  - Cellulitis [None]
  - Arthropod bite [None]
  - Rash [None]
